FAERS Safety Report 19501219 (Version 1)
Quarter: 2021Q3

REPORT INFORMATION
  Report Type: Spontaneous
  Country: US (occurrence: US)
  Receive Date: 20210702
  Receipt Date: 20210702
  Transmission Date: 20211014
  Serious: No
  Sender: FDA-Public Use
  Company Number: None

PATIENT
  Age: 82 Year
  Sex: Female
  Weight: 58.97 kg

DRUGS (17)
  1. BERBERINE [Concomitant]
     Active Substance: BERBERINE
  2. AMLODIPINE [Concomitant]
     Active Substance: AMLODIPINE BESYLATE
  3. VITAMIN D3 [Concomitant]
     Active Substance: CHOLECALCIFEROL
  4. VITAMIN B12 [Concomitant]
     Active Substance: CYANOCOBALAMIN
  5. ADRENAL SUPPORT [Concomitant]
     Active Substance: HOMEOPATHICS
  6. OZEMPIC [Suspect]
     Active Substance: SEMAGLUTIDE
     Indication: DIABETES MELLITUS INADEQUATE CONTROL
     Dosage: ?          QUANTITY:5 DF DOSAGE FORM;?
     Route: 058
     Dates: start: 20010501, end: 20010515
  7. METOPROLOL. [Concomitant]
     Active Substance: METOPROLOL
  8. CHROMIUM [Concomitant]
     Active Substance: CHROMIC CHLORIDE\CHROMIUM
  9. TUMERIC [Concomitant]
     Active Substance: HERBALS\TURMERIC
  10. LOSARTAN. [Concomitant]
     Active Substance: LOSARTAN
  11. HUMALOG [Concomitant]
     Active Substance: INSULIN LISPRO
  12. MULTIVITAMIN [Concomitant]
     Active Substance: VITAMINS
  13. CLOPIDOGREL [Concomitant]
     Active Substance: CLOPIDOGREL BISULFATE
  14. TRECIBA [Concomitant]
  15. BENEFIBER [Concomitant]
     Active Substance: STARCH, WHEAT
  16. COENZYME Q10 [Concomitant]
     Active Substance: DIETARY SUPPLEMENT\UBIDECARENONE
  17. PROBIOTIC [Concomitant]
     Active Substance: PROBIOTICS NOS

REACTIONS (2)
  - Blood glucose increased [None]
  - Therapy cessation [None]
